FAERS Safety Report 9826982 (Version 1)
Quarter: 2014Q1

REPORT INFORMATION
  Report Type: Spontaneous
  Country: US (occurrence: US)
  Receive Date: 20140117
  Receipt Date: 20140117
  Transmission Date: 20141002
  Serious: No
  Sender: FDA-Public Use
  Company Number: US-GLAXOSMITHKLINE-A1023713A

PATIENT
  Age: 87 Year
  Sex: Male
  Weight: 63.6 kg

DRUGS (4)
  1. PROMACTA [Suspect]
     Indication: IMMUNE THROMBOCYTOPENIC PURPURA
     Dosage: 50MG PER DAY
     Route: 048
     Dates: start: 20130412
  2. NORVASC [Concomitant]
     Indication: HYPERTENSION
     Dosage: 10MG UNKNOWN
     Route: 048
     Dates: start: 2000
  3. ATACAND [Concomitant]
     Indication: HYPERTENSION
     Route: 048
     Dates: start: 2010
  4. LIPITOR [Concomitant]
     Indication: DYSLIPIDAEMIA
     Route: 048
     Dates: start: 2005

REACTIONS (6)
  - Diarrhoea [Recovered/Resolved]
  - Myalgia [Unknown]
  - Muscular weakness [Recovering/Resolving]
  - Gastrointestinal hypermotility [Unknown]
  - Adverse event [Unknown]
  - Frequent bowel movements [Recovering/Resolving]
